FAERS Safety Report 7272388-8 (Version None)
Quarter: 2011Q1

REPORT INFORMATION
  Report Type: 
  Country: None (occurrence: None)
  Receive Date: 20110131
  Receipt Date: 20110131
  Transmission Date: 20110831
  Serious: Yes (Hospitalization)
  Sender: FDA-Public Use
  Company Number: None

PATIENT
  Age: 64 Year
  Sex: Male
  Weight: 122 kg

DRUGS (2)
  1. PIPERACILLIN/TAZOBACTAM [Suspect]
     Indication: SCROTAL INFECTION
     Dosage: 1 GM TID IV
     Route: 042
     Dates: start: 20110108, end: 20110108
  2. VANCOMYCIN [Suspect]
     Indication: SCROTAL INFECTION
     Dosage: 1500 MG EVERY DAY IV
     Route: 042
     Dates: start: 20101219, end: 20110109

REACTIONS (8)
  - ALANINE AMINOTRANSFERASE INCREASED [None]
  - RENAL FAILURE ACUTE [None]
  - PYREXIA [None]
  - RASH ERYTHEMATOUS [None]
  - HYPERSENSITIVITY [None]
  - HEPATIC ENZYME INCREASED [None]
  - RASH PAPULAR [None]
  - EOSINOPHILIA [None]
